FAERS Safety Report 22058142 (Version 2)
Quarter: 2023Q1

REPORT INFORMATION
  Report Type: Spontaneous
  Country: GB (occurrence: GB)
  Receive Date: 20230303
  Receipt Date: 20230323
  Transmission Date: 20230418
  Serious: Yes (Disabling, Other)
  Sender: FDA-Public Use
  Company Number: None

PATIENT
  Age: 11 Month
  Weight: 66.67 kg

DRUGS (1)
  1. EZETIMIBE [Suspect]
     Active Substance: EZETIMIBE
     Indication: Type IIa hyperlipidaemia
     Dosage: UNK, TABLET
     Route: 048
     Dates: start: 20230211

REACTIONS (7)
  - Muscle spasms [Not Recovered/Not Resolved]
  - Influenza like illness [Unknown]
  - Dyspnoea [Unknown]
  - Myalgia [Unknown]
  - Gait disturbance [Unknown]
  - Condition aggravated [Unknown]
  - Pain [Unknown]

NARRATIVE: CASE EVENT DATE: 20230213
